FAERS Safety Report 8014937-8 (Version None)
Quarter: 2011Q4

REPORT INFORMATION
  Report Type: 
  Country: None (occurrence: None)
  Receive Date: 20111229
  Receipt Date: 20111220
  Transmission Date: 20120403
  Serious: Yes (Hospitalization)
  Sender: FDA-Public Use
  Company Number: JP-ROCHE-763506

PATIENT
  Sex: Female
  Weight: 44.8 kg

DRUGS (12)
  1. BLINDED OCRELIZUMAB [Suspect]
     Indication: RHEUMATOID ARTHRITIS
     Route: 042
     Dates: start: 20090722, end: 20090805
  2. ISONIAZID [Concomitant]
     Indication: ANTIBIOTIC PROPHYLAXIS
     Dosage: BEGININING OF DOSAGE DAY AFTER BREAKFAST: TRIAL PREINITIATION
     Route: 048
  3. CELECOXIB [Concomitant]
     Indication: RHEUMATOID ARTHRITIS
     Dosage: BEGININING OF DOSAGE DAY AFTER BREAKFAST: TRIAL PREINITIATION
     Route: 048
  4. CELECOXIB [Concomitant]
     Route: 048
  5. RHEUMATREX [Concomitant]
     Indication: RHEUMATOID ARTHRITIS
     Dosage: THE BEGINNING OF DOSAGE DAY: TRIAL PREINITIATION -IT IS 4 MG-0-2 MG ONCE A WEEK AFTER THE MEAL
     Route: 048
  6. VITAMEDIN [Concomitant]
     Indication: VITAMIN SUPPLEMENTATION
     Dosage: BEGINNING OF DOSAGE DAY AFTER BREAKFAST: TRIAL PREINITIATION
     Route: 048
  7. CLARITHROMYCIN [Concomitant]
     Indication: BRONCHIECTASIS
     Dosage: BEGINNING OF DOSAGE DAY AFTER BREAKFAST: TRIAL PREINITIATION
     Route: 048
  8. FERROUS CITRATE [Concomitant]
     Indication: ANAEMIA PROPHYLAXIS
     Route: 048
  9. PREDNISOLONE [Concomitant]
     Indication: RHEUMATOID ARTHRITIS
     Dosage: AFTER THE SUPPER
     Route: 048
  10. ACTEMRA [Suspect]
     Indication: PRODUCT USED FOR UNKNOWN INDICATION
     Route: 042
     Dates: start: 20081112, end: 20081211
  11. SULFAMETHOXAZOLE AND TRIMETHOPRIM [Concomitant]
     Indication: ANTIFUNGAL PROPHYLAXIS
     Dosage: AFTER THE BREAKFAST
     Route: 048
  12. OMEPRAZOLE [Concomitant]
     Indication: GASTRITIS PROPHYLAXIS
     Dosage: BEGINNING OF DOSAGE DAY AFTER BREAKFAST: TRIAL PREINITIATION
     Route: 048

REACTIONS (1)
  - JOINT DESTRUCTION [None]
